FAERS Safety Report 6437854-3 (Version None)
Quarter: 2009Q4

REPORT INFORMATION
  Report Type: 
  Country: None (occurrence: None)
  Receive Date: 20091112
  Receipt Date: 20091104
  Transmission Date: 20100525
  Serious: Yes (Other)
  Sender: FDA-Public Use
  Company Number: US-B.I. PHARMACEUTICALS,INC./RIDGEFIELD-2009-BP-12821BP

PATIENT
  Age: 78 Year
  Sex: Female

DRUGS (4)
  1. ZANTAC 150 [Suspect]
     Indication: DYSPEPSIA
     Dosage: 150 MG
     Route: 048
     Dates: start: 20091102, end: 20091102
  2. IBUPROFEN [Concomitant]
     Indication: INTERVERTEBRAL DISC PROTRUSION
  3. IBUPROFEN [Concomitant]
     Indication: PAIN
  4. IBUPROFEN [Concomitant]
     Indication: ARTHRITIS

REACTIONS (4)
  - LOSS OF CONSCIOUSNESS [None]
  - PULSE ABSENT [None]
  - SWOLLEN TONGUE [None]
  - THROAT TIGHTNESS [None]
